FAERS Safety Report 16173467 (Version 2)
Quarter: 2019Q2

REPORT INFORMATION
  Report Type: Spontaneous
  Country: US (occurrence: US)
  Receive Date: 20190409
  Receipt Date: 20190626
  Transmission Date: 20190711
  Serious: Yes (Hospitalization, Other)
  Sender: FDA-Public Use
  Company Number: US-JNJFOC-20190409441

PATIENT
  Age: 76 Year
  Sex: Male
  Weight: 89.26 kg

DRUGS (22)
  1. ATORVASTATIN CALCIUM. [Concomitant]
     Active Substance: ATORVASTATIN CALCIUM
     Route: 048
  2. NAPROXEN. [Concomitant]
     Active Substance: NAPROXEN
     Indication: HEADACHE
     Route: 048
  3. MAGNESIUM [Concomitant]
     Active Substance: MAGNESIUM
     Route: 048
  4. CALCIUM [Concomitant]
     Active Substance: CALCIUM
  5. VOLTAREN [Concomitant]
     Active Substance: DICLOFENAC SODIUM
     Route: 061
  6. XGEVA [Concomitant]
     Active Substance: DENOSUMAB
     Dosage: 120MG/1.7ML (70 MG/ML)
     Dates: start: 20180212
  7. XGEVA [Concomitant]
     Active Substance: DENOSUMAB
     Dosage: 120MG/1.7ML (70 MG/ML)
     Dates: start: 20190313
  8. TYLENOL [Concomitant]
     Active Substance: ACETAMINOPHEN
  9. ZYTIGA [Suspect]
     Active Substance: ABIRATERONE ACETATE
     Indication: PROSTATE CANCER METASTATIC
     Route: 048
     Dates: start: 20190213, end: 20190515
  10. FLONASE [Concomitant]
     Active Substance: FLUTICASONE PROPIONATE
     Indication: NASAL CONGESTION
     Dosage: 50 MCG/INHALATION, 2 SPRAY EACH DOSE, NOSTRIL EACH
  11. MONTELUKAST SODIUM. [Concomitant]
     Active Substance: MONTELUKAST SODIUM
     Dosage: AT BED TIME.
     Route: 048
  12. ZOFRAN [Concomitant]
     Active Substance: ONDANSETRON HYDROCHLORIDE
  13. DENOSUMAB [Concomitant]
     Active Substance: DENOSUMAB
     Dates: start: 20180320, end: 20190416
  14. CHLORPHENIRAMINE MALEATE. [Concomitant]
     Active Substance: CHLORPHENIRAMINE MALEATE
     Dosage: PATIENT MAY TAKE 1 OR 2 TABLETS.
     Route: 048
  15. PREDNISONE. [Concomitant]
     Active Substance: PREDNISONE
     Indication: PROSTATE CANCER METASTATIC
     Route: 048
     Dates: start: 20190213, end: 20190515
  16. AMLODIPINE BESYLATE. [Concomitant]
     Active Substance: AMLODIPINE BESYLATE
     Route: 048
  17. MEMANTINE HCL [Concomitant]
     Active Substance: MEMANTINE
     Route: 048
  18. XGEVA [Concomitant]
     Active Substance: DENOSUMAB
     Dosage: 120MG/1.7ML (70 MG/ML)
     Dates: start: 20190416, end: 20190515
  19. MEDROL [Concomitant]
     Active Substance: METHYLPREDNISOLONE
     Route: 048
  20. IRON [Concomitant]
     Active Substance: IRON
     Route: 048
  21. LISINOPRIL. [Concomitant]
     Active Substance: LISINOPRIL
     Route: 048
  22. VITAMIN D3 [Concomitant]
     Active Substance: CHOLECALCIFEROL
     Route: 048

REACTIONS (1)
  - Sepsis [Unknown]

NARRATIVE: CASE EVENT DATE: 20190331
